FAERS Safety Report 23407377 (Version 1)
Quarter: 2024Q1

REPORT INFORMATION
  Report Type: Other
  Country: US (occurrence: US)
  Receive Date: 20240116
  Receipt Date: 20240116
  Transmission Date: 20240409
  Serious: Yes (Other)
  Sender: FDA-Public Use
  Company Number: US-ALVOGEN-2024092857

PATIENT
  Age: 53 Year
  Sex: Male

DRUGS (5)
  1. DISULFIRAM [Suspect]
     Active Substance: DISULFIRAM
     Indication: Product used for unknown indication
     Dosage: 250 MG
  2. Teri?unomide [Concomitant]
     Indication: Multiple sclerosis
  3. BUSPIRONE [Concomitant]
     Active Substance: BUSPIRONE HYDROCHLORIDE
     Indication: Prophylaxis
  4. SERTRALINE [Concomitant]
     Active Substance: SERTRALINE HYDROCHLORIDE
     Indication: Prophylaxis
  5. Combination emtricitabine and tenofovir disoproxil fumarate [Concomitant]
     Indication: Prophylaxis

REACTIONS (1)
  - Toxic optic neuropathy [Recovering/Resolving]
